FAERS Safety Report 6202074-4 (Version None)
Quarter: 2009Q2

REPORT INFORMATION
  Report Type: 
  Country: None (occurrence: None)
  Receive Date: 20090526
  Receipt Date: 20090511
  Transmission Date: 20091009
  Serious: Yes (Death)
  Sender: FDA-Public Use
  Company Number: FR-GENENTECH-272962

PATIENT
  Sex: Male

DRUGS (2)
  1. AVASTIN [Suspect]
     Indication: COLORECTAL CANCER
     Dosage: 7.5 MG/KG, UNK
     Route: 042
     Dates: start: 20081124
  2. XELODA [Suspect]
     Indication: COLORECTAL CANCER
     Dosage: 2 G, UNK
     Route: 048
     Dates: start: 20081124

REACTIONS (1)
  - CARDIAC ARREST [None]
